FAERS Safety Report 7467109-X (Version None)
Quarter: 2011Q2

REPORT INFORMATION
  Report Type: 
  Country: None (occurrence: None)
  Receive Date: 20110509
  Receipt Date: 20101018
  Transmission Date: 20111010
  Serious: No
  Sender: FDA-Public Use
  Company Number: US-ALEXION-A201001320

PATIENT
  Sex: Female

DRUGS (4)
  1. LASIX [Concomitant]
     Indication: SWELLING
     Dosage: 20 MG, PRN
     Route: 048
  2. KLOR-CON [Concomitant]
     Dosage: 10 MEQ, PRN
     Route: 048
  3. SOLIRIS [Suspect]
     Dosage: 900 MG, Q2W
     Route: 042
     Dates: start: 20090728
  4. SOLIRIS [Suspect]
     Indication: PAROXYSMAL NOCTURNAL HAEMOGLOBINURIA
     Dosage: 600 MG, QW
     Route: 042
     Dates: start: 20090630

REACTIONS (4)
  - FACE OEDEMA [None]
  - HAEMOGLOBIN DECREASED [None]
  - OEDEMA PERIPHERAL [None]
  - EYE OEDEMA [None]
